FAERS Safety Report 5203716-2 (Version None)
Quarter: 2007Q1

REPORT INFORMATION
  Report Type: 
  Country: None (occurrence: None)
  Receive Date: 20070110
  Receipt Date: 20070105
  Transmission Date: 20070707
  Serious: Yes (Hospitalization)
  Sender: FDA-Public Use
  Company Number: US-ELI_LILLY_AND_COMPANY-US200605005999

PATIENT
  Sex: Male
  Weight: 126.53 kg

DRUGS (9)
  1. ZYPREXA [Suspect]
     Indication: SUICIDAL IDEATION
     Dates: start: 19970605, end: 20060407
  2. SEROQUEL [Concomitant]
     Dates: start: 20020216, end: 20051209
  3. ZOLOFT [Concomitant]
     Dates: start: 19970612, end: 20051028
  4. TRAZODONE HCL [Concomitant]
     Dates: start: 19970612, end: 20040910
  5. ALPRAZOLAM [Concomitant]
     Dates: start: 20000918, end: 20030401
  6. VALIUM                                  /NET/ [Concomitant]
     Dates: start: 20001016, end: 20010815
  7. NEURONTIN [Concomitant]
     Dates: start: 20001031, end: 20001216
  8. WELLBUTRIN [Concomitant]
     Dates: start: 20010104, end: 20051028
  9. KLONOPIN [Concomitant]
     Dates: start: 20010130, end: 20051028

REACTIONS (4)
  - CARDIAC OPERATION [None]
  - DIABETES MELLITUS [None]
  - VISUAL ACUITY REDUCED [None]
  - WEIGHT INCREASED [None]
